FAERS Safety Report 7767836-0 (Version None)
Quarter: 2011Q3

REPORT INFORMATION
  Report Type: 
  Country: None (occurrence: None)
  Receive Date: 20110922
  Receipt Date: 20100810
  Transmission Date: 20111222
  Serious: No
  Sender: FDA-Public Use
  Company Number: US-ASTRAZENECA-2008UW01215

PATIENT
  Age: 19 Year
  Sex: Female
  Weight: 148.3 kg

DRUGS (23)
  1. SEROQUEL [Suspect]
     Indication: BIPOLAR DISORDER
     Dosage: 25-200 MG
     Route: 048
     Dates: start: 19990101
  2. SEROQUEL [Suspect]
     Route: 048
     Dates: start: 20040101
  3. RISPERDAL [Concomitant]
     Dates: start: 20000101
  4. SEROQUEL [Suspect]
     Dosage: 25-200 MG
     Route: 048
     Dates: start: 19990101
  5. SEROQUEL [Suspect]
     Route: 048
     Dates: start: 20040101
  6. SEROQUEL [Suspect]
     Route: 048
     Dates: start: 20040101
  7. SEROQUEL [Suspect]
     Indication: DEPRESSION
     Dosage: 25-200 MG
     Route: 048
     Dates: start: 19990101
  8. DEPAKOTE [Concomitant]
     Indication: CONVULSION
     Dosage: 1000-1500 MG
     Dates: start: 19970101
  9. GEODON [Concomitant]
  10. NAPROSYN [Concomitant]
     Indication: OSTEOARTHRITIS
     Dates: start: 20030501
  11. SEROQUEL [Suspect]
     Indication: SCHIZOPHRENIA
     Dosage: 25-200 MG
     Route: 048
     Dates: start: 19990101
  12. SEROQUEL [Suspect]
     Dosage: 25-200 MG
     Route: 048
     Dates: start: 19990101
  13. SEROQUEL [Suspect]
     Dosage: 25-200 MG
     Route: 048
     Dates: start: 19990101
  14. TOPAMAX [Concomitant]
     Dates: start: 20040101
  15. TRAZODONE HYDROCHLORIDE [Concomitant]
     Dosage: 100 MG QHS PRN
     Route: 048
     Dates: start: 20060101
  16. RISPERDAL [Concomitant]
     Indication: NERVOUSNESS
     Dates: start: 20030101
  17. HALDOL [Concomitant]
  18. SEROQUEL [Suspect]
     Dosage: 25-200 MG
     Route: 048
     Dates: start: 19990101
  19. ED CHLOR-TAN [Concomitant]
     Dosage: 8 MG, TWO DAILY PRN
     Route: 048
     Dates: start: 20070101
  20. CLOZAPINE [Concomitant]
  21. SEROQUEL [Suspect]
     Indication: ANXIETY
     Dosage: 25-200 MG
     Route: 048
     Dates: start: 19990101
  22. SEROQUEL [Suspect]
     Route: 048
     Dates: start: 20040101
  23. GEODON [Concomitant]
     Route: 048
     Dates: start: 20040101

REACTIONS (7)
  - ADVERSE DRUG REACTION [None]
  - TYPE 2 DIABETES MELLITUS [None]
  - OBESITY [None]
  - MENTAL DISORDER [None]
  - GLYCOSURIA [None]
  - HYPERGLYCAEMIA [None]
  - DIABETIC COMPLICATION [None]
